FAERS Safety Report 4945732-1 (Version None)
Quarter: 2006Q1

REPORT INFORMATION
  Report Type: 
  Country: None (occurrence: None)
  Receive Date: 20060316
  Receipt Date: 20060308
  Transmission Date: 20060701
  Serious: Yes (Hospitalization)
  Sender: FDA-Public Use
  Company Number: HU-SOLVAY-00306000836

PATIENT
  Age: 33 Year
  Sex: Female
  Weight: 56 kg

DRUGS (3)
  1. PROGESTERONE [Suspect]
     Indication: ILL-DEFINED DISORDER
     Dosage: DAILY DOSE: 600 MILLIGRAM(S)
     Route: 067
  2. HUMAN CHORIONIC GONADOTROPIN [Suspect]
     Indication: ILL-DEFINED DISORDER
     Dosage: DAILY DOSE: 5000 INTERNATIONAL UNIT(S)
     Route: 065
  3. HUMAN CHORIONIC GONADOTROPIN [Suspect]
     Dosage: DAILY DOSE: 2500 INTERNATIONAL UNIT(S)
     Route: 065

REACTIONS (3)
  - ANAEMIA [None]
  - OVARIAN HYPERSTIMULATION SYNDROME [None]
  - PROTEINURIA [None]
